FAERS Safety Report 15613653 (Version 1)
Quarter: 2018Q4

REPORT INFORMATION
  Report Type: Spontaneous
  Country: DE (occurrence: DE)
  Receive Date: 20181113
  Receipt Date: 20181113
  Transmission Date: 20190205
  Serious: Yes (Other)
  Sender: FDA-Public Use
  Company Number: DE-BAYER-2018-206760

PATIENT
  Age: 11 Year
  Sex: Male

DRUGS (2)
  1. ASPIRIN 500 MG [Suspect]
     Active Substance: ASPIRIN
     Route: 048
  2. RITALIN [Suspect]
     Active Substance: METHYLPHENIDATE HYDROCHLORIDE
     Indication: ATTENTION DEFICIT/HYPERACTIVITY DISORDER
     Route: 048

REACTIONS (4)
  - Platelet disorder [Not Recovered/Not Resolved]
  - Oedema peripheral [Unknown]
  - Platelet disorder [Unknown]
  - Bleeding time prolonged [Unknown]

NARRATIVE: CASE EVENT DATE: 2001
